FAERS Safety Report 4634689-9 (Version None)
Quarter: 2005Q2

REPORT INFORMATION
  Report Type: 
  Country: None (occurrence: None)
  Receive Date: 20050412
  Receipt Date: 20050330
  Transmission Date: 20051028
  Serious: Yes (Death)
  Sender: FDA-Public Use
  Company Number: HQWYE549330MAR05

PATIENT

DRUGS (1)
  1. RAPAMUNE [Suspect]

REACTIONS (1)
  - MYOCARDIAL INFARCTION [None]
